FAERS Safety Report 14880821 (Version 1)
Quarter: 2018Q2

REPORT INFORMATION
  Report Type: Spontaneous
  Country: FR (occurrence: FR)
  Receive Date: 20180511
  Receipt Date: 20180511
  Transmission Date: 20180711
  Serious: Yes (Hospitalization, Other)
  Sender: FDA-Public Use
  Company Number: FR-MERCK KGAA-2047613

PATIENT
  Age: 70 Year
  Sex: Female

DRUGS (1)
  1. NOVOTHYROX [Suspect]
     Active Substance: LEVOTHYROXINE SODIUM
     Indication: POST PROCEDURAL HYPOTHYROIDISM
     Dates: start: 2017

REACTIONS (22)
  - Colitis ischaemic [None]
  - Malaise [None]
  - Dysstasia [None]
  - Loss of personal independence in daily activities [None]
  - C-reactive protein increased [None]
  - Blood thyroid stimulating hormone [None]
  - Nausea [None]
  - Hypertension [None]
  - Decreased interest [None]
  - Pain [None]
  - Hospitalisation [None]
  - Transferrin saturation decreased [None]
  - Anger [None]
  - Fatigue [None]
  - Nervousness [None]
  - Migraine [None]
  - Vertigo [None]
  - Dizziness [None]
  - Irritability [None]
  - Skin discomfort [None]
  - Decreased activity [None]
  - Thyroxine free increased [None]

NARRATIVE: CASE EVENT DATE: 201703
